FAERS Safety Report 4533426-6 (Version None)
Quarter: 2004Q4

REPORT INFORMATION
  Report Type: 
  Country: None (occurrence: None)
  Receive Date: 20041221
  Receipt Date: 20041213
  Transmission Date: 20050328
  Serious: Yes (Hospitalization)
  Sender: FDA-Public Use
  Company Number: US-ROCHE-389132

PATIENT
  Age: 40 Year
  Sex: Female
  Weight: 65.8 kg

DRUGS (8)
  1. KLONOPIN [Suspect]
     Indication: DRUG USE FOR UNKNOWN INDICATION
     Dosage: DOSE REPORTED AS LARGE AMOUNT
     Route: 065
     Dates: start: 20041021
  2. PLAVIX [Suspect]
     Route: 048
     Dates: start: 20041021
  3. PLAVIX [Suspect]
     Route: 048
     Dates: start: 20020615
  4. AMBIEN [Suspect]
     Indication: SLEEP DISORDER
     Route: 048
     Dates: start: 20041021, end: 20041021
  5. DEPAKOTE [Suspect]
     Indication: DRUG USE FOR UNKNOWN INDICATION
     Route: 065
     Dates: start: 20041021
  6. LEXAPRO [Suspect]
     Indication: DRUG USE FOR UNKNOWN INDICATION
     Dosage: DOSE REPORTED AS LARGE AMOUNT
     Route: 065
     Dates: start: 20041021
  7. XANAX [Suspect]
     Indication: DRUG USE FOR UNKNOWN INDICATION
     Dosage: DOSE REPORTED AS LARGE AMOUNT
     Route: 065
     Dates: start: 20041021
  8. ACETYLSALICYLIC ACID [Concomitant]
     Route: 048

REACTIONS (3)
  - LOSS OF CONSCIOUSNESS [None]
  - MULTIPLE DRUG OVERDOSE [None]
  - OVERDOSE [None]
